FAERS Safety Report 6595192-2 (Version None)
Quarter: 2010Q1

REPORT INFORMATION
  Report Type: 
  Country: None (occurrence: None)
  Receive Date: 20100212
  Receipt Date: 20100201
  Transmission Date: 20100710
  Serious: Yes (Hospitalization)
  Sender: FDA-Public Use
  Company Number: B0631787A

PATIENT
  Age: 42 Year
  Sex: Male

DRUGS (2)
  1. ABACAVIR SULFATE AND LAMIVUDINE [Suspect]
     Indication: HIV INFECTION
  2. DARUNAVIR (FORMULATION UNKNOWN) (DARUNAVIR) [Suspect]
     Indication: HIV INFECTION

REACTIONS (19)
  - BLOOD BICARBONATE INCREASED [None]
  - BLOOD GLUCOSE INCREASED [None]
  - CONJUNCTIVITIS [None]
  - DRUG HYPERSENSITIVITY [None]
  - HAEMODIALYSIS [None]
  - HEART RATE INCREASED [None]
  - MOUTH HAEMORRHAGE [None]
  - ODYNOPHAGIA [None]
  - PLATELET COUNT DECREASED [None]
  - PNEUMONIA [None]
  - PYREXIA [None]
  - RENAL FAILURE ACUTE [None]
  - RESPIRATORY DISTRESS [None]
  - SALIVARY HYPERSECRETION [None]
  - SPEECH DISORDER [None]
  - STAPHYLOCOCCAL INFECTION [None]
  - TOXIC EPIDERMAL NECROLYSIS [None]
  - VISUAL ACUITY REDUCED [None]
  - WHITE BLOOD CELL COUNT DECREASED [None]
